FAERS Safety Report 16622687 (Version 1)
Quarter: 2019Q3

REPORT INFORMATION
  Report Type: Spontaneous
  Country: US (occurrence: US)
  Receive Date: 20190723
  Receipt Date: 20190723
  Transmission Date: 20191004
  Serious: Yes (Other)
  Sender: FDA-Public Use
  Company Number: US-OTSUKA-2019_013343

PATIENT
  Age: 35 Year
  Sex: Female

DRUGS (4)
  1. ABILIFY [Suspect]
     Active Substance: ARIPIPRAZOLE
     Indication: MAJOR DEPRESSION
     Dosage: UNK
     Route: 065
  2. VIIBRYD [Suspect]
     Active Substance: VILAZODONE HYDROCHLORIDE
     Indication: MAJOR DEPRESSION
     Dosage: UNK
     Route: 065
  3. REXULTI [Suspect]
     Active Substance: BREXPIPRAZOLE
     Indication: MAJOR DEPRESSION
     Dosage: UNK
     Route: 065
  4. TRINTELLIX [Suspect]
     Active Substance: VORTIOXETINE HYDROBROMIDE
     Indication: MAJOR DEPRESSION
     Dosage: UNK
     Route: 065

REACTIONS (13)
  - Suicidal ideation [Unknown]
  - Weight increased [Unknown]
  - Restlessness [Unknown]
  - Obsessive-compulsive disorder [Unknown]
  - Compulsive shopping [Unknown]
  - Gambling disorder [Unknown]
  - Vomiting [Unknown]
  - Disease progression [Unknown]
  - Crying [Unknown]
  - Anorgasmia [Unknown]
  - Compulsive sexual behaviour [Unknown]
  - Ill-defined disorder [Unknown]
  - Crepitations [Unknown]
